FAERS Safety Report 5625972-9 (Version None)
Quarter: 2008Q1

REPORT INFORMATION
  Report Type: 
  Country: None (occurrence: None)
  Receive Date: 20080213
  Receipt Date: 20080213
  Transmission Date: 20080703
  Serious: Yes (Death)
  Sender: FDA-Public Use
  Company Number: None

PATIENT
  Age: 70 Year
  Sex: Male

DRUGS (1)
  1. VIAGRA [Suspect]
     Dosage: 40.0 MILLIGRAM(S); 1;
     Dates: start: 20070908, end: 20070908

REACTIONS (3)
  - FALL [None]
  - PULSE ABSENT [None]
  - RESPIRATORY ARREST [None]
